FAERS Safety Report 21746680 (Version 1)
Quarter: 2022Q4

REPORT INFORMATION
  Report Type: Spontaneous
  Country: US (occurrence: None)
  Receive Date: 20221216
  Receipt Date: 20221216
  Transmission Date: 20230112
  Serious: Yes (Hospitalization)
  Sender: FDA-Public Use
  Company Number: None

PATIENT
  Sex: Female

DRUGS (2)
  1. LENALIDOMIDE [Suspect]
     Active Substance: LENALIDOMIDE
     Indication: Plasma cell myeloma
     Dosage: 15MG ORAL??TAKE 1 CAPSULE BY MOUTH ONCE DAILY ON DAYS 1-21 FOLLOWED BY 7 DAYS OFF FOR A 28 DAY CYCL
     Route: 048
     Dates: start: 20221118
  2. MULTIPLE VIT [Concomitant]

REACTIONS (1)
  - Therapy interrupted [None]
